FAERS Safety Report 7592089-6 (Version None)
Quarter: 2011Q2

REPORT INFORMATION
  Report Type: 
  Country: None (occurrence: None)
  Receive Date: 20110628
  Receipt Date: 20110620
  Transmission Date: 20111010
  Serious: Yes (Hospitalization, Other)
  Sender: FDA-Public Use
  Company Number: 2011SP028863

PATIENT
  Age: 81 Year

DRUGS (3)
  1. BENEFIBER [Concomitant]
  2. MIRALAX [Suspect]
     Indication: CONSTIPATION
     Dosage: PO
     Route: 048
  3. POTASSIUM [Concomitant]

REACTIONS (3)
  - FREQUENT BOWEL MOVEMENTS [None]
  - DIARRHOEA [None]
  - FAECALOMA [None]
